FAERS Safety Report 26079048 (Version 1)
Quarter: 2025Q4

REPORT INFORMATION
  Report Type: Spontaneous
  Country: US (occurrence: US)
  Receive Date: 20251123
  Receipt Date: 20251123
  Transmission Date: 20260117
  Serious: No
  Sender: GALPHARM INTERNATIONAL
  Company Number: US-PERRIGO-25US005000

PATIENT
  Age: 30 Year
  Sex: Female
  Weight: 87.528 kg

DRUGS (1)
  1. OPILL [Suspect]
     Active Substance: NORGESTREL
     Indication: Polycystic ovarian syndrome
     Dosage: 0.075 MG, QD
     Route: 048
     Dates: start: 202502

REACTIONS (3)
  - Food craving [Not Recovered/Not Resolved]
  - Hyperphagia [Not Recovered/Not Resolved]
  - Drug ineffective for unapproved indication [Not Recovered/Not Resolved]

NARRATIVE: CASE EVENT DATE: 20250201
